FAERS Safety Report 7178756-7 (Version None)
Quarter: 2010Q4

REPORT INFORMATION
  Report Type: 
  Country: None (occurrence: None)
  Receive Date: 20101221
  Receipt Date: 20101208
  Transmission Date: 20110411
  Serious: Yes (Hospitalization)
  Sender: FDA-Public Use
  Company Number: US-ELI_LILLY_AND_COMPANY-US201010007222

PATIENT
  Sex: Female

DRUGS (12)
  1. FORTEO [Suspect]
     Indication: OSTEOPOROSIS
     Dosage: 20 UG, DAILY (1/D)
  2. ADVAIR [Concomitant]
     Dosage: UNK, 2/D
  3. SPIRIVA [Concomitant]
     Dosage: UNK, DAILY (1/D)
  4. LOTREL [Concomitant]
  5. METOPROLOL [Concomitant]
     Dosage: 12.5 MG, 2/D
  6. XOPENEX [Concomitant]
     Dosage: UNK, 4/D
     Route: 055
  7. CENTRUM [Concomitant]
     Dosage: UNK, DAILY (1/D)
  8. OSCAL [Concomitant]
     Dosage: UNK, 2/D
  9. PREDNISONE [Concomitant]
     Dosage: 5 MG, DAILY (1/D)
  10. PERCOCET [Concomitant]
     Dosage: UNK, AS NEEDED
  11. MUCINEX [Concomitant]
  12. LAXATIVES [Concomitant]

REACTIONS (6)
  - BACK PAIN [None]
  - COMPRESSION FRACTURE [None]
  - DIZZINESS [None]
  - DYSPNOEA [None]
  - EMPHYSEMA [None]
  - PROCEDURAL PAIN [None]
